FAERS Safety Report 4986794-5 (Version None)
Quarter: 2006Q2

REPORT INFORMATION
  Report Type: 
  Country: None (occurrence: None)
  Receive Date: 20060428
  Receipt Date: 20060421
  Transmission Date: 20061013
  Serious: Yes (Hospitalization)
  Sender: FDA-Public Use
  Company Number: US-MERCK-0604USA03916

PATIENT
  Age: 34 Year
  Sex: Male

DRUGS (1)
  1. IVOMEC [Suspect]
     Indication: DRUG ADMINISTRATION ERROR
     Route: 061
     Dates: start: 20060414, end: 20060414

REACTIONS (8)
  - ACCIDENTAL EXPOSURE [None]
  - FATIGUE [None]
  - HEPATIC ENZYME INCREASED [None]
  - LETHARGY [None]
  - MUSCULAR WEAKNESS [None]
  - PLATELET COUNT DECREASED [None]
  - SOMNOLENCE [None]
  - WHITE BLOOD CELL COUNT DECREASED [None]
